FAERS Safety Report 24910232 (Version 1)
Quarter: 2025Q1

REPORT INFORMATION
  Report Type: Report from Study
  Country: US (occurrence: US)
  Receive Date: 20250131
  Receipt Date: 20250131
  Transmission Date: 20250408
  Serious: Yes (Other)
  Sender: TEVA
  Company Number: US-TEVA-VS-3291299

PATIENT
  Age: 64 Year
  Sex: Female

DRUGS (1)
  1. AUSTEDO XR [Suspect]
     Active Substance: DEUTETRABENAZINE
     Indication: Dyskinesia
     Dosage: QD
     Route: 065
     Dates: start: 20241209

REACTIONS (2)
  - Hallucination [Unknown]
  - Dizziness [Unknown]

NARRATIVE: CASE EVENT DATE: 20241201
